FAERS Safety Report 17370262 (Version 1)
Quarter: 2020Q1

REPORT INFORMATION
  Report Type: Spontaneous
  Country: FR (occurrence: FR)
  Receive Date: 20200205
  Receipt Date: 20200205
  Transmission Date: 20200409
  Serious: Yes (Other)
  Sender: FDA-Public Use
  Company Number: FR-PFIZER INC-2020047338

PATIENT
  Age: 51 Year
  Sex: Male

DRUGS (1)
  1. DOSTINEX [Suspect]
     Active Substance: CABERGOLINE
     Dosage: 0.5 DF, WEEKLY
     Dates: start: 20191225

REACTIONS (2)
  - Sudden onset of sleep [Unknown]
  - Headache [Unknown]
